FAERS Safety Report 8261510-2 (Version None)
Quarter: 2012Q2

REPORT INFORMATION
  Report Type: 
  Country: None (occurrence: None)
  Receive Date: 20120405
  Receipt Date: 20120328
  Transmission Date: 20120825
  Serious: Yes (Hospitalization)
  Sender: FDA-Public Use
  Company Number: IT-ASTELLAS-2012US003174

PATIENT
  Sex: Male

DRUGS (6)
  1. AREDIA [Concomitant]
     Dosage: UNKNOWN/D
     Route: 042
     Dates: start: 20120215
  2. TARCEVA [Suspect]
     Indication: LUNG ADENOCARCINOMA
     Dosage: 150 MG, UID/QD
     Route: 048
     Dates: start: 20110906, end: 20111102
  3. AREDIA [Concomitant]
     Indication: PRODUCT USED FOR UNKNOWN INDICATION
     Dosage: 60 MG, UNKNOWN/D
     Route: 042
     Dates: start: 20110817, end: 20111102
  4. TARCEVA [Suspect]
     Dosage: 150 MG, UID/QD
     Route: 048
     Dates: start: 20120215
  5. TARCEVA [Suspect]
     Dosage: 150 MG, UID/QD
     Route: 048
     Dates: start: 20120323, end: 20120323
  6. AREDIA [Concomitant]
     Dosage: UNKNOWN/D
     Route: 042
     Dates: start: 20120323

REACTIONS (1)
  - PALMAR-PLANTAR ERYTHRODYSAESTHESIA SYNDROME [None]
